FAERS Safety Report 6260415-6 (Version None)
Quarter: 2009Q3

REPORT INFORMATION
  Report Type: 
  Country: None (occurrence: None)
  Receive Date: 20090708
  Receipt Date: 20090702
  Transmission Date: 20100115
  Serious: Yes (Hospitalization)
  Sender: FDA-Public Use
  Company Number: DE-MERCK-0907DEU00014

PATIENT
  Age: 56 Year
  Sex: Male

DRUGS (5)
  1. JANUMET [Suspect]
     Indication: TYPE 2 DIABETES MELLITUS
     Route: 048
     Dates: start: 20090401, end: 20090601
  2. JANUMET [Suspect]
     Route: 048
     Dates: start: 20090701, end: 20090701
  3. ENALAPRIL MALEATE [Concomitant]
     Route: 048
     Dates: start: 20050101
  4. LEVOTHYROXINE SODIUM [Concomitant]
     Route: 048
     Dates: start: 20050101
  5. ALLOPURINOL [Concomitant]
     Route: 048
     Dates: start: 20050101

REACTIONS (4)
  - ARTHRALGIA [None]
  - INFLAMMATION [None]
  - PYREXIA [None]
  - UVEITIS [None]
